FAERS Safety Report 5347212-0 (Version None)
Quarter: 2007Q2

REPORT INFORMATION
  Report Type: 
  Country: None (occurrence: None)
  Receive Date: 20070509
  Receipt Date: 20061004
  Transmission Date: 20071010
  Serious: Yes (Hospitalization, Other)
  Sender: FDA-Public Use
  Company Number: PHEH2006US12501

PATIENT
  Age: 31 Year
  Sex: Female

DRUGS (1)
  1. TEGRETOL [Suspect]
     Indication: CONVULSION
     Dosage: 200 MG, BID
     Dates: start: 20050101

REACTIONS (6)
  - CHILLS [None]
  - GRANULOMA [None]
  - HEPATIC LESION [None]
  - HYPERSENSITIVITY [None]
  - PYREXIA [None]
  - SPLENIC LESION [None]
